FAERS Safety Report 9369253 (Version 1)
Quarter: 2013Q2

REPORT INFORMATION
  Report Type: Spontaneous
  Country: US (occurrence: None)
  Receive Date: 20130625
  Receipt Date: 20130625
  Transmission Date: 20140414
  Serious: Yes (Death)
  Sender: FDA-Public Use
  Company Number: None

PATIENT
  Sex: 0

DRUGS (2)
  1. EYLEA 2 MG REGENERON [Suspect]
     Indication: RETINAL VEIN OCCLUSION
     Dosage: 1, EVERY FOUR WEEKS, INTRAOCULAR
     Route: 031
     Dates: start: 20130131, end: 20130329
  2. EYLEA 2 MG REGENERON [Suspect]
     Indication: MACULAR OEDEMA
     Dosage: 1, EVERY FOUR WEEKS, INTRAOCULAR
     Route: 031
     Dates: start: 20130131, end: 20130329

REACTIONS (1)
  - Death [None]
